FAERS Safety Report 4511366-6 (Version None)
Quarter: 2004Q4

REPORT INFORMATION
  Report Type: 
  Country: None (occurrence: None)
  Receive Date: 20041123
  Receipt Date: 20041123
  Transmission Date: 20050328
  Serious: Yes (Life-Threatening, Hospitalization)
  Sender: FDA-Public Use
  Company Number: None

PATIENT
  Age: 51 Year
  Sex: Female
  Weight: 83.9154 kg

DRUGS (3)
  1. ASACOL [Suspect]
     Indication: COLITIS
     Dosage: 800 MG 2X DAY ORAL
     Route: 048
     Dates: start: 20020805, end: 20041101
  2. PLAQUENIL [Suspect]
     Indication: ARTHRITIS
     Dosage: 2X DAY ORAL
     Route: 048
     Dates: start: 20041015, end: 20041102
  3. PLAQUENIL [Suspect]
     Indication: INFLAMMATION
     Dosage: 2X DAY ORAL
     Route: 048
     Dates: start: 20041015, end: 20041102

REACTIONS (1)
  - STEVENS-JOHNSON SYNDROME [None]
